FAERS Safety Report 18972431 (Version 1)
Quarter: 2021Q1

REPORT INFORMATION
  Report Type: Spontaneous
  Country: US (occurrence: US)
  Receive Date: 20210304
  Receipt Date: 20210304
  Transmission Date: 20210420
  Serious: No
  Sender: FDA-Public Use
  Company Number: None

PATIENT
  Age: 44 Year
  Sex: Female
  Weight: 92.25 kg

DRUGS (16)
  1. FEXOFENADINE [Concomitant]
     Active Substance: FEXOFENADINE HYDROCHLORIDE
  2. CALCIUM [Concomitant]
     Active Substance: CALCIUM
  3. VITAMIN C [Concomitant]
     Active Substance: ASCORBIC ACID
  4. MAGNESIUM GLYCINATE [Concomitant]
     Active Substance: MAGNESIUM GLYCINATE
  5. WOMEN^S MULTIVITAMIN [Concomitant]
  6. IRON [Concomitant]
     Active Substance: IRON
  7. METHYLPHENIDATE ER 24 HOUR 54MG TR24 [Suspect]
     Active Substance: METHYLPHENIDATE
     Indication: ATTENTION DEFICIT HYPERACTIVITY DISORDER
     Dosage: ?          QUANTITY:1 TABLET(S);?
     Route: 048
     Dates: start: 20210212
  8. ETHINYL ESTRDIOL?ETONOGESTREL 24 HR RING [Concomitant]
  9. FISH OIL [Concomitant]
     Active Substance: FISH OIL
  10. 5?HTP [Concomitant]
  11. ALCAR [Concomitant]
     Active Substance: ACETYLCARNITINE
  12. CITICHOLINE [Concomitant]
  13. LATANOPROST. [Concomitant]
     Active Substance: LATANOPROST
  14. L?THEANINE [Concomitant]
     Active Substance: DIETARY SUPPLEMENT
  15. NAC [Concomitant]
  16. L?TYROSINE [Concomitant]
     Active Substance: TYROSINE

REACTIONS (4)
  - Recalled product administered [None]
  - Heart rate decreased [None]
  - Quality of life decreased [None]
  - Product substitution issue [None]

NARRATIVE: CASE EVENT DATE: 20210304
